FAERS Safety Report 19855523 (Version 1)
Quarter: 2021Q3

REPORT INFORMATION
  Report Type: Spontaneous
  Country: US (occurrence: US)
  Receive Date: 20210920
  Receipt Date: 20210920
  Transmission Date: 20211014
  Serious: Yes (Hospitalization)
  Sender: FDA-Public Use
  Company Number: None

PATIENT
  Age: 52 Year
  Sex: Male
  Weight: 101.6 kg

DRUGS (1)
  1. REGEN?COV [Suspect]
     Active Substance: CASIRIVIMAB\IMDEVIMAB
     Indication: COVID-19
     Dosage: ??          OTHER FREQUENCY:ONCE;?
     Route: 058
     Dates: start: 20210910, end: 20210910

REACTIONS (4)
  - Alanine aminotransferase increased [None]
  - Blood glucose increased [None]
  - Aspartate aminotransferase increased [None]
  - Pneumonia [None]

NARRATIVE: CASE EVENT DATE: 20210911
